FAERS Safety Report 8773919 (Version 3)
Quarter: 2012Q4

REPORT INFORMATION
  Report Type: 
  Country: US (occurrence: US)
  Receive Date: 20120907
  Receipt Date: 20121025
  Transmission Date: 20130627
  Serious: Yes (Other)
  Sender: FDA-Public Use
  Company Number: US-PFIZER INC-2012207878

PATIENT
  Age: 50 Year
  Sex: Male
  Weight: 100 kg

DRUGS (6)
  1. NEURONTIN [Suspect]
     Indication: NEURALGIA
     Dosage: 900 mg, 3x/day
     Dates: start: 2012, end: 2012
  2. NEURONTIN [Suspect]
     Dosage: 900 mg, 3x/day
     Dates: start: 2012
  3. TRAMADOL [Concomitant]
     Indication: NEURALGIA
     Dosage: 50 mg, 4x/day
  4. LISINOPRIL [Concomitant]
     Indication: BLOOD CHOLESTEROL ABNORMAL
     Dosage: UNK, daily
  5. SIMVASTATIN [Concomitant]
     Indication: BLOOD PRESSURE ABNORMAL
     Dosage: UNK, daily
  6. PIROXICAM [Concomitant]
     Indication: SLEEP DISORDER
     Dosage: UNK, daily

REACTIONS (2)
  - Hallucination [Recovered/Resolved]
  - Pain [Recovered/Resolved]
